FAERS Safety Report 8455932-4 (Version None)
Quarter: 2012Q2

REPORT INFORMATION
  Report Type: 
  Country: None (occurrence: None)
  Receive Date: 20120621
  Receipt Date: 20120618
  Transmission Date: 20120825
  Serious: Yes (Other)
  Sender: FDA-Public Use
  Company Number: PHHY2012NL052090

PATIENT
  Age: 12 Month
  Sex: Male

DRUGS (1)
  1. FUROSEMIDE [Suspect]
     Indication: HYPERTENSION
     Dosage: 0.5 MG/KG, PER DAY

REACTIONS (3)
  - DEHYDRATION [None]
  - ACIDOSIS [None]
  - RENAL FAILURE CHRONIC [None]
